FAERS Safety Report 24385929 (Version 1)
Quarter: 2024Q4

REPORT INFORMATION
  Report Type: Spontaneous
  Country: US (occurrence: None)
  Receive Date: 20241001
  Receipt Date: 20241001
  Transmission Date: 20250114
  Serious: No
  Sender: Public
  Company Number: None

PATIENT
  Age: 21 Year
  Sex: Female
  Weight: 90 kg

DRUGS (3)
  1. QULIPTA [Suspect]
     Active Substance: ATOGEPANT
     Indication: Migraine prophylaxis
     Dosage: 30 TABLETS DAILY ORAL
     Route: 048
     Dates: start: 20240917, end: 20241001
  2. Norethidrone acetate birth control [Concomitant]
  3. NARATRIPTAN [Concomitant]
     Active Substance: NARATRIPTAN HYDROCHLORIDE

REACTIONS (7)
  - Hyperhidrosis [None]
  - Depression [None]
  - Condition aggravated [None]
  - Affective disorder [None]
  - Constipation [None]
  - Drug ineffective [None]
  - Insomnia [None]

NARRATIVE: CASE EVENT DATE: 20240925
